FAERS Safety Report 14172441 (Version 1)
Quarter: 2017Q4

REPORT INFORMATION
  Report Type: Spontaneous
  Country: US (occurrence: US)
  Receive Date: 20171108
  Receipt Date: 20171108
  Transmission Date: 20180321
  Serious: Yes (Disabling)
  Sender: FDA-Public Use
  Company Number: None

PATIENT
  Age: 32 Year
  Sex: Female
  Weight: 54 kg

DRUGS (1)
  1. HYDROCODONE-ACETAMINOPH 7.5-325 [Suspect]
     Active Substance: ACETAMINOPHEN\HYDROCODONE BITARTRATE
     Indication: PAIN
     Dosage: ?          QUANTITY:28 TABLET(S);?
     Route: 048
     Dates: start: 20171016, end: 20171016

REACTIONS (4)
  - Fibromyalgia [None]
  - Headache [None]
  - Drug ineffective [None]
  - Rebound effect [None]

NARRATIVE: CASE EVENT DATE: 20171016
